FAERS Safety Report 7777605-3 (Version None)
Quarter: 2011Q3

REPORT INFORMATION
  Report Type: 
  Country: None (occurrence: None)
  Receive Date: 20110926
  Receipt Date: 20110916
  Transmission Date: 20111222
  Serious: Yes (Hospitalization)
  Sender: FDA-Public Use
  Company Number: FR-BAYER-2011-087872

PATIENT
  Age: 53 Year
  Sex: Female

DRUGS (3)
  1. PYRAZINAMIDE [Concomitant]
     Dosage: UNK
     Route: 048
     Dates: start: 20110620, end: 20110807
  2. MOXIFLOXACIN HCL [Suspect]
     Indication: NODULE
     Dosage: 400 MG, QD
     Route: 048
     Dates: start: 20110722, end: 20110807
  3. RIFADIN [Concomitant]
     Dosage: UNK
     Route: 048
     Dates: start: 20110620, end: 20110807

REACTIONS (1)
  - PERSECUTORY DELUSION [None]
